FAERS Safety Report 23688817 (Version 3)
Quarter: 2025Q2

REPORT INFORMATION
  Report Type: Spontaneous
  Country: US (occurrence: US)
  Receive Date: 20240329
  Receipt Date: 20250508
  Transmission Date: 20250717
  Serious: No
  Sender: GILEAD
  Company Number: US-GILEAD-2024-0667205

PATIENT
  Sex: Female
  Weight: 109.3 kg

DRUGS (1)
  1. LENACAPAVIR [Suspect]
     Active Substance: LENACAPAVIR
     Indication: Product used for unknown indication
     Route: 065

REACTIONS (1)
  - Injection site discharge [Recovered/Resolved]
